FAERS Safety Report 8620719-6 (Version None)
Quarter: 2012Q3

REPORT INFORMATION
  Report Type: 
  Country: None (occurrence: None)
  Receive Date: 20120824
  Receipt Date: 20120821
  Transmission Date: 20120928
  Serious: Yes (Other)
  Sender: FDA-Public Use
  Company Number: US-ABBOTT-12P-163-0970770-00

PATIENT
  Sex: Female
  Weight: 71.278 kg

DRUGS (12)
  1. SINGULAIR [Concomitant]
     Indication: HYPERSENSITIVITY
  2. ZANTAC [Concomitant]
     Indication: GASTROOESOPHAGEAL REFLUX DISEASE
  3. LOPERAMIDE [Concomitant]
     Indication: DIARRHOEA
     Route: 048
     Dates: start: 20120329, end: 20120604
  4. PRENATAL VITAMIN NOS [Concomitant]
     Indication: PRODUCT USED FOR UNKNOWN INDICATION
     Dosage: 1 PILL
     Route: 048
     Dates: start: 20120329, end: 20120604
  5. SINGULAIR [Concomitant]
     Indication: ASTHMA
     Route: 048
     Dates: start: 20120329, end: 20120604
  6. ASCORBIC ACID [Concomitant]
     Indication: PROPHYLAXIS
     Dosage: DAILY
     Route: 048
     Dates: start: 20120329, end: 20120604
  7. TEA [Concomitant]
     Indication: PRODUCT USED FOR UNKNOWN INDICATION
     Dosage: 1 SERVING 1.5 WEEK
     Route: 048
     Dates: start: 20120329, end: 20120604
  8. ZANTAC [Concomitant]
     Indication: DYSPEPSIA
     Route: 048
     Dates: start: 20120329, end: 20120604
  9. ASCORBIC ACID [Concomitant]
     Indication: MALAISE
  10. LOPERAMIDE [Concomitant]
     Indication: CROHN'S DISEASE
  11. ACETAMINOPHEN [Concomitant]
     Indication: HEADACHE
     Route: 048
     Dates: start: 20120329, end: 20120604
  12. HUMIRA [Suspect]
     Indication: CROHN'S DISEASE
     Dates: start: 20120329, end: 20120804

REACTIONS (5)
  - HEADACHE [None]
  - HYPERSENSITIVITY [None]
  - ABORTION SPONTANEOUS [None]
  - HORMONE LEVEL ABNORMAL [None]
  - GASTROOESOPHAGEAL REFLUX DISEASE [None]
